FAERS Safety Report 14836979 (Version 2)
Quarter: 2018Q2

REPORT INFORMATION
  Report Type: Spontaneous
  Country: US (occurrence: US)
  Receive Date: 20180502
  Receipt Date: 20180511
  Transmission Date: 20180711
  Serious: No
  Sender: FDA-Public Use
  Company Number: US-TEVA-2018-US-886508

PATIENT
  Sex: Female

DRUGS (3)
  1. METOPROLOL. [Concomitant]
     Active Substance: METOPROLOL
  2. LISINOPRIL. [Suspect]
     Active Substance: LISINOPRIL
     Route: 065
  3. ANASTRAZOLE [Concomitant]
     Active Substance: ANASTROZOLE

REACTIONS (2)
  - Decreased appetite [Unknown]
  - Constipation [Unknown]
